FAERS Safety Report 19452173 (Version 1)
Quarter: 2021Q2

REPORT INFORMATION
  Report Type: Spontaneous
  Country: US (occurrence: US)
  Receive Date: 20210623
  Receipt Date: 20210623
  Transmission Date: 20210717
  Serious: No
  Sender: FDA-Public Use
  Company Number: US-KARYOPHARM-2021KPT000707

PATIENT

DRUGS (24)
  1. XPOVIO [Suspect]
     Active Substance: SELINEXOR
     Indication: PLASMA CELL MYELOMA
     Dosage: 60 MG, WEEKLY
     Route: 048
     Dates: start: 20210510
  2. ACYCLOVIR ABBOTT VIAL [Concomitant]
  3. LIDOCAINE. [Concomitant]
     Active Substance: LIDOCAINE
  4. PREVALITE [Concomitant]
     Active Substance: CHOLESTYRAMINE
  5. PROCHLORPERAZINE. [Concomitant]
     Active Substance: PROCHLORPERAZINE
  6. SYNTHROID [Concomitant]
     Active Substance: LEVOTHYROXINE SODIUM
  7. UROCIT?K [Concomitant]
     Active Substance: POTASSIUM CITRATE
  8. DULOXETINE. [Concomitant]
     Active Substance: DULOXETINE
  9. GABAPENTIN. [Concomitant]
     Active Substance: GABAPENTIN
  10. ACIDOPHILUS PROBIOTIC [Concomitant]
     Active Substance: LACTOBACILLUS ACIDOPHILUS
  11. DEXAMETHASONE. [Concomitant]
     Active Substance: DEXAMETHASONE
  12. LISINOPRIL. [Concomitant]
     Active Substance: LISINOPRIL
  13. MONTELUKAST SODIUM. [Concomitant]
     Active Substance: MONTELUKAST SODIUM
  14. ASPIRIN (E.C.) [Concomitant]
     Active Substance: ASPIRIN
  15. ONDANSETRON [Concomitant]
     Active Substance: ONDANSETRON
  16. FENOFIBRATE. [Concomitant]
     Active Substance: FENOFIBRATE
  17. INDAPAMIDE. [Concomitant]
     Active Substance: INDAPAMIDE
  18. AMLODIPINE BESYLATE. [Concomitant]
     Active Substance: AMLODIPINE BESYLATE
     Indication: PRODUCT USED FOR UNKNOWN INDICATION
  19. MAGNESIUM [Concomitant]
     Active Substance: MAGNESIUM
  20. FIBERCON [Concomitant]
     Active Substance: CALCIUM POLYCARBOPHIL
  21. CHOLESTYRAMINE. [Concomitant]
     Active Substance: CHOLESTYRAMINE
  22. POMALYST [Concomitant]
     Active Substance: POMALIDOMIDE
  23. VITAMIN B12 [Concomitant]
     Active Substance: CYANOCOBALAMIN
  24. SERTRALINE [Concomitant]
     Active Substance: SERTRALINE HYDROCHLORIDE

REACTIONS (1)
  - Fatigue [Unknown]

NARRATIVE: CASE EVENT DATE: 202105
